FAERS Safety Report 9696526 (Version 1)
Quarter: 2013Q4

REPORT INFORMATION
  Report Type: Spontaneous
  Country: IT (occurrence: None)
  Receive Date: 20131115
  Receipt Date: 20131115
  Transmission Date: 20140711
  Serious: Yes (Death, Hospitalization)
  Sender: FDA-Public Use
  Company Number: IPC201311-000452

PATIENT
  Sex: 0
  Weight: 75 kg

DRUGS (2)
  1. TRAMADOL [Suspect]
  2. PROPOFOL [Suspect]

REACTIONS (13)
  - Acute respiratory failure [None]
  - Atrial fibrillation [None]
  - Pulmonary thrombosis [None]
  - Pulmonary oedema [None]
  - Cardiomyopathy [None]
  - Cardiac arrest [None]
  - Self-medication [None]
  - Acidosis [None]
  - Troponin T increased [None]
  - Myoglobin blood increased [None]
  - Needle track marks [None]
  - Hepatic congestion [None]
  - Toxicity to various agents [None]
